FAERS Safety Report 9725498 (Version 2)
Quarter: 2014Q4

REPORT INFORMATION
  Report Type: Spontaneous
  Country: US (occurrence: None)
  Receive Date: 20131127
  Receipt Date: 20141105
  Transmission Date: 20150529
  Serious: No
  Sender: FDA-Public Use
  Company Number: 2013-US-003556

PATIENT
  Age: 63 Year
  Sex: Male

DRUGS (3)
  1. PROVIGIL [Concomitant]
     Active Substance: MODAFINIL
  2. XYREM [Suspect]
     Active Substance: SODIUM OXYBATE
     Indication: SOMNOLENCE
     Dosage: 3 G, BID, ORAL
     Route: 048
     Dates: start: 200904
  3. XYREM [Suspect]
     Active Substance: SODIUM OXYBATE
     Indication: HYPERSOMNIA
     Dosage: 3 G, BID, ORAL
     Route: 048
     Dates: start: 200904

REACTIONS (5)
  - Sleep apnoea syndrome [None]
  - Hypersomnia [None]
  - Off label use [None]
  - Atrial fibrillation [None]
  - Fatigue [None]

NARRATIVE: CASE EVENT DATE: 2012
